FAERS Safety Report 7177289-1 (Version None)
Quarter: 2010Q4

REPORT INFORMATION
  Report Type: 
  Country: None (occurrence: None)
  Receive Date: 20101220
  Receipt Date: 20101206
  Transmission Date: 20110411
  Serious: Yes (Hospitalization, Other)
  Sender: FDA-Public Use
  Company Number: US-ELI_LILLY_AND_COMPANY-US201012001336

PATIENT
  Sex: Female

DRUGS (13)
  1. FORTEO [Suspect]
     Indication: OSTEOPOROSIS
     Dosage: 20 UG, DAILY (1/D)
     Route: 058
     Dates: start: 20100201
  2. CYMBALTA [Concomitant]
     Dosage: UNK, UNKNOWN
     Route: 065
  3. NEURONTIN [Concomitant]
     Dosage: UNK, UNKNOWN
     Route: 065
  4. CLONAZEPAM [Concomitant]
     Dosage: UNK, UNKNOWN
     Route: 065
  5. TOPRAL [Concomitant]
     Dosage: UNK, UNKNOWN
     Route: 065
  6. OXYCODONE AND ACETAMINOPHEN [Concomitant]
     Dosage: UNK, UNKNOWN
     Route: 065
  7. SYNTHROID [Concomitant]
     Dosage: UNK, UNKNOWN
     Route: 065
  8. ASPIRIN [Concomitant]
     Dosage: UNK, UNKNOWN
     Route: 065
  9. OMEPRAZOLE [Concomitant]
     Dosage: UNK, UNKNOWN
     Route: 065
  10. LOVAZA [Concomitant]
     Dosage: UNK, UNKNOWN
     Route: 065
  11. GLUCOSAMINE [Concomitant]
     Dosage: UNK, UNKNOWN
     Route: 065
  12. CHONDROITIN [Concomitant]
     Dosage: UNK, UNKNOWN
     Route: 065
  13. MULTI-VITAMIN [Concomitant]
     Dosage: UNK, UNKNOWN
     Route: 065

REACTIONS (5)
  - ARTHRALGIA [None]
  - DRUG DOSE OMISSION [None]
  - FALL [None]
  - HIP FRACTURE [None]
  - PAIN [None]
